FAERS Safety Report 23543858 (Version 1)
Quarter: 2024Q1

REPORT INFORMATION
  Report Type: Report from Study
  Country: US (occurrence: US)
  Receive Date: 20240220
  Receipt Date: 20240220
  Transmission Date: 20240409
  Serious: Yes (Other)
  Sender: FDA-Public Use
  Company Number: US-MYLANLABS-2024M1014021

PATIENT
  Sex: Female
  Weight: 92.5 kg

DRUGS (1)
  1. GLATIRAMER ACETATE [Suspect]
     Active Substance: GLATIRAMER ACETATE
     Indication: Multiple sclerosis
     Dosage: UNK
     Route: 058

REACTIONS (4)
  - Multiple sclerosis relapse [Unknown]
  - Stress [Unknown]
  - Inability to afford medication [Unknown]
  - Somnolence [Unknown]
